FAERS Safety Report 7042530-2 (Version None)
Quarter: 2010Q4

REPORT INFORMATION
  Report Type: 
  Country: None (occurrence: None)
  Receive Date: 20101013
  Receipt Date: 20100512
  Transmission Date: 20110411
  Serious: Yes (Hospitalization)
  Sender: FDA-Public Use
  Company Number: US-ASTRAZENECA-2010SE21604

PATIENT
  Sex: Female

DRUGS (4)
  1. SYMBICORT [Suspect]
     Indication: ASTHMA
     Dosage: TWO TIMES A DAY; TOTAL DAILY DOSAGE: 640 MCG.
     Route: 055
     Dates: start: 20080101
  2. ALBUTEROL [Concomitant]
     Route: 065
  3. ATROVENT [Concomitant]
     Route: 065
  4. SINGULAIR [Concomitant]
     Route: 065

REACTIONS (1)
  - ASTHMA [None]
